FAERS Safety Report 5842935-9 (Version None)
Quarter: 2008Q3

REPORT INFORMATION
  Report Type: 
  Country: None (occurrence: None)
  Receive Date: 20080811
  Receipt Date: 20080708
  Transmission Date: 20090109
  Serious: Yes (Death)
  Sender: FDA-Public Use
  Company Number: ES-2008-0161

PATIENT
  Sex: Female

DRUGS (2)
  1. NAVELBINE [Suspect]
     Dosage: 25 MG/M2; CYCLICAL
  2. CAPECITABINE (CAPECITABINE, CAPECITABINE) FILM COATED TABLET [Suspect]
     Indication: BREAST CANCER METASTATIC
     Dosage: 2000 MG/M2, CYCLICAL
     Route: 048

REACTIONS (6)
  - DIARRHOEA [None]
  - METABOLIC ACIDOSIS [None]
  - NEUTROPENIA [None]
  - RENAL FAILURE ACUTE [None]
  - SEPTIC SHOCK [None]
  - SYNCOPE [None]
